FAERS Safety Report 5139815-3 (Version None)
Quarter: 2006Q4

REPORT INFORMATION
  Report Type: 
  Country: None (occurrence: None)
  Receive Date: 20060905
  Receipt Date: 20060527
  Transmission Date: 20070319
  Serious: No
  Sender: FDA-Public Use
  Company Number: 34993

PATIENT
  Sex: Male

DRUGS (3)
  1. NEVANAC [Suspect]
     Indication: EYE PAIN
  2. VIGAMOX [Concomitant]
  3. ECONOPRED PLUS [Concomitant]

REACTIONS (1)
  - CONDITION AGGRAVATED [None]
